FAERS Safety Report 8021056-3 (Version None)
Quarter: 2012Q1

REPORT INFORMATION
  Report Type: 
  Country: None (occurrence: None)
  Receive Date: 20120104
  Receipt Date: 20111227
  Transmission Date: 20120608
  Serious: Yes (Other)
  Sender: FDA-Public Use
  Company Number: US-JNJFOC-20111211200

PATIENT
  Sex: Female
  Weight: 58.06 kg

DRUGS (6)
  1. REMICADE [Suspect]
     Indication: PSORIATIC ARTHROPATHY
     Route: 042
     Dates: end: 20110101
  2. RITUXAN [Suspect]
     Indication: PSORIATIC ARTHROPATHY
     Route: 050
  3. REMICADE [Suspect]
     Route: 042
  4. METHOTREXATE [Concomitant]
     Indication: ARTHRITIS
     Route: 065
     Dates: start: 20080101
  5. PREDNISONE [Concomitant]
     Indication: SWELLING
     Route: 065
     Dates: start: 20080101
  6. ALL OTHER THERAPEUTICS [Concomitant]
     Indication: BLOOD PRESSURE
     Route: 065
     Dates: start: 20080101

REACTIONS (4)
  - B-LYMPHOCYTE ABNORMALITIES [None]
  - DRUG RESISTANCE [None]
  - ONYCHOMADESIS [None]
  - DRUG EFFECT DECREASED [None]
